FAERS Safety Report 21437608 (Version 2)
Quarter: 2022Q4

REPORT INFORMATION
  Report Type: Spontaneous
  Country: JP (occurrence: JP)
  Receive Date: 20221011
  Receipt Date: 20221121
  Transmission Date: 20230113
  Serious: Yes (Other)
  Sender: FDA-Public Use
  Company Number: JP-NOVARTISPH-NVSJ2022JP098730

PATIENT
  Age: 85 Year
  Sex: Male

DRUGS (16)
  1. INDACATEROL [Suspect]
     Active Substance: INDACATEROL
     Indication: Chronic obstructive pulmonary disease
     Dosage: UNK
  2. CHOREITO [Concomitant]
     Indication: Product used for unknown indication
     Dosage: 2.5 MG, TID, BEFORE EACH MEAL
     Route: 048
  3. CHOREITO [Concomitant]
     Dosage: 7.5 G
     Route: 048
  4. NEXIUM [Concomitant]
     Active Substance: ESOMEPRAZOLE MAGNESIUM
     Indication: Product used for unknown indication
     Dosage: 20 MG, QD, AFTER BREAKFAST
     Route: 048
  5. ATORVASTATIN [Concomitant]
     Active Substance: ATORVASTATIN
     Indication: Product used for unknown indication
     Dosage: 10 MG, QD, AFTER BREAKFAST
     Route: 048
  6. TENELIGLIPTIN [Concomitant]
     Active Substance: TENELIGLIPTIN
     Indication: Product used for unknown indication
     Dosage: 20 MG, QD, AFTER BREAKFAST
     Route: 048
  7. QUERCUS SALICINA STEM [Concomitant]
     Active Substance: QUERCUS SALICINA STEM
     Indication: Product used for unknown indication
     Dosage: 225 MG, TID, AFTER EACH MEAL
     Route: 048
  8. CARBOCYSTEINE [Concomitant]
     Active Substance: CARBOCYSTEINE
     Indication: Product used for unknown indication
     Dosage: 500 MG, BID
     Route: 048
  9. CARBOCYSTEINE [Concomitant]
     Active Substance: CARBOCYSTEINE
     Dosage: 500 MG, TID
     Route: 048
  10. AZITHROMYCIN [Concomitant]
     Active Substance: AZITHROMYCIN
     Indication: Product used for unknown indication
     Dosage: 500 MG, QD, AFTER DINNER
     Route: 048
  11. TRAMAZOLINE [Concomitant]
     Active Substance: TRAMAZOLINE
     Indication: Product used for unknown indication
     Dosage: UNK
     Route: 045
  12. AMPICILLIN AND SULBACTAM [Concomitant]
     Active Substance: AMPICILLIN SODIUM\SULBACTAM SODIUM
     Indication: Chronic obstructive pulmonary disease
     Dosage: 3 G, TID
     Route: 065
  13. LEVOCETIRIZINE DIHYDROCHLORIDE [Concomitant]
     Active Substance: LEVOCETIRIZINE DIHYDROCHLORIDE
     Indication: Product used for unknown indication
     Dosage: 10 MG, QD, BEFORE BEDTIME
     Route: 048
  14. EMEDASTINE DIFUMARATE [Concomitant]
     Active Substance: EMEDASTINE DIFUMARATE
     Indication: Product used for unknown indication
     Dosage: 2 MG, BID, AFTER BREAKFAST AND DINNER
     Route: 048
  15. MONTELUKAST [Concomitant]
     Active Substance: MONTELUKAST SODIUM
     Indication: Product used for unknown indication
     Dosage: 10 MG, QD, BEFORE BEDTIOME
     Route: 048
  16. AUGMENTIN [Concomitant]
     Active Substance: AMOXICILLIN\CLAVULANATE POTASSIUM
     Indication: Product used for unknown indication
     Dosage: UNK
     Route: 065

REACTIONS (3)
  - Urinary retention [Recovering/Resolving]
  - Benign prostatic hyperplasia [Recovering/Resolving]
  - Concomitant disease aggravated [Recovering/Resolving]

NARRATIVE: CASE EVENT DATE: 20220507
